FAERS Safety Report 9849917 (Version 1)
Quarter: 2013Q4

REPORT INFORMATION
  Report Type: Spontaneous
  Country: US (occurrence: None)
  Receive Date: 20131226
  Receipt Date: 20131226
  Transmission Date: 20140711
  Serious: No
  Sender: FDA-Public Use
  Company Number: PHEH2012US020388

PATIENT
  Sex: Male

DRUGS (1)
  1. AFINITOR ( RAD) UNKNOWN [Suspect]
     Route: 048
     Dates: end: 20121005

REACTIONS (2)
  - Cardiac failure [None]
  - Fluid retention [None]
